FAERS Safety Report 5082618-9 (Version None)
Quarter: 2006Q3

REPORT INFORMATION
  Report Type: 
  Country: None (occurrence: None)
  Receive Date: 20060814
  Receipt Date: 20060805
  Transmission Date: 20061208
  Serious: Yes (Other)
  Sender: FDA-Public Use
  Company Number: 14545

PATIENT
  Age: 6 Month

DRUGS (1)
  1. ACYCLOVIR [Suspect]

REACTIONS (1)
  - NEUROTOXICITY [None]
